FAERS Safety Report 23998480 (Version 1)
Quarter: 2024Q2

REPORT INFORMATION
  Report Type: Spontaneous
  Country: JP (occurrence: JP)
  Receive Date: 20240621
  Receipt Date: 20240621
  Transmission Date: 20240716
  Serious: Yes (Hospitalization)
  Sender: FDA-Public Use
  Company Number: JP-STRIDES ARCOLAB LIMITED-2024SP007182

PATIENT
  Age: 4 Decade
  Sex: Female

DRUGS (4)
  1. LEVETIRACETAM [Suspect]
     Active Substance: LEVETIRACETAM
     Indication: Temporal lobe epilepsy
     Dosage: UNK
     Route: 065
  2. CARBAMAZEPINE [Suspect]
     Active Substance: CARBAMAZEPINE
     Indication: Temporal lobe epilepsy
     Dosage: UNK
     Route: 065
  3. VALPROATE SODIUM [Suspect]
     Active Substance: VALPROATE SODIUM
     Indication: Temporal lobe epilepsy
     Dosage: UNK
     Route: 065
  4. ZONISAMIDE [Suspect]
     Active Substance: ZONISAMIDE
     Indication: Temporal lobe epilepsy
     Dosage: UNK
     Route: 065

REACTIONS (1)
  - Treatment failure [Unknown]
